FAERS Safety Report 6030883-3 (Version None)
Quarter: 2009Q1

REPORT INFORMATION
  Report Type: 
  Country: None (occurrence: None)
  Receive Date: 20090106
  Receipt Date: 20081223
  Transmission Date: 20090719
  Serious: Yes (Hospitalization)
  Sender: FDA-Public Use
  Company Number: 233227K08USA

PATIENT
  Age: 63 Year
  Sex: Male
  Weight: 72 kg

DRUGS (14)
  1. REBIF [Suspect]
     Indication: MULTIPLE SCLEROSIS
     Dosage: 44 MCG, 3 IN 1 WEEKS, SUBCUTANEOUS, 44 MCG, 3 IN 1 WEEKS, SUBCUTANEOUS
     Route: 058
     Dates: start: 20080415, end: 20080701
  2. REBIF [Suspect]
     Indication: MULTIPLE SCLEROSIS
     Dosage: 44 MCG, 3 IN 1 WEEKS, SUBCUTANEOUS, 44 MCG, 3 IN 1 WEEKS, SUBCUTANEOUS
     Route: 058
     Dates: start: 20040101
  3. REBIF [Suspect]
     Indication: MULTIPLE SCLEROSIS
     Dosage: 44 MCG, 3 IN 1 WEEKS, SUBCUTANEOUS, 44 MCG, 3 IN 1 WEEKS, SUBCUTANEOUS
     Route: 058
     Dates: start: 20080701
  4. SYNTHROID [Concomitant]
  5. BACLOFEN [Concomitant]
  6. DANTRIUM [Concomitant]
  7. URISED (URISED) [Concomitant]
  8. DICLOFENAC (DICLOFENAC) [Concomitant]
  9. ZETIA [Concomitant]
  10. LYRICA [Concomitant]
  11. LOVAZA (OMEGA-3 TRIGLYCERIDES) [Concomitant]
  12. NASONEX SPRAY (MOMETASONE FUROATE) [Concomitant]
  13. MULTI-VITAMINS [Concomitant]
  14. SOLU-MEDROL [Concomitant]

REACTIONS (4)
  - ASTHENIA [None]
  - BLOOD DISORDER [None]
  - INFECTION [None]
  - URINARY TRACT INFECTION [None]
